FAERS Safety Report 20943225 (Version 1)
Quarter: 2022Q2

REPORT INFORMATION
  Report Type: Other
  Country: CA (occurrence: None)
  Receive Date: 20220610
  Receipt Date: 20220610
  Transmission Date: 20220721
  Serious: Yes (Hospitalization)
  Sender: FDA-Public Use
  Company Number: CA-ROCHE-3112666

PATIENT
  Sex: Male

DRUGS (10)
  1. OCREVUS [Suspect]
     Active Substance: OCRELIZUMAB
     Indication: Primary progressive multiple sclerosis
     Dosage: MORE DOSAGE INFORMATION IS 300 MG AT DAY 0 AND 14, THEN 600 MG EVERY 6 MONTH
     Route: 042
     Dates: start: 20201209
  2. BACLOFEN [Concomitant]
     Active Substance: BACLOFEN
  3. TAMSULOSIN [Concomitant]
     Active Substance: TAMSULOSIN
  4. DULOXETINE [Concomitant]
     Active Substance: DULOXETINE
  5. PANTOPRAZOLE [Concomitant]
     Active Substance: PANTOPRAZOLE
  6. SENNAE [Concomitant]
  7. EMOLAX (CANADA) [Concomitant]
  8. QUETIAPINE [Concomitant]
     Active Substance: QUETIAPINE
  9. TIZANIDINE [Concomitant]
     Active Substance: TIZANIDINE
  10. TOVIAZ [Concomitant]
     Active Substance: FESOTERODINE FUMARATE

REACTIONS (7)
  - Prostatic disorder [Not Recovered/Not Resolved]
  - Spinal osteoarthritis [Unknown]
  - Urinary tract infection [Unknown]
  - Insomnia [Unknown]
  - Nightmare [Unknown]
  - Hallucination [Unknown]
  - Fatigue [Unknown]
